FAERS Safety Report 21886660 (Version 1)
Quarter: 2023Q1

REPORT INFORMATION
  Report Type: Spontaneous
  Country: SK (occurrence: SK)
  Receive Date: 20230119
  Receipt Date: 20230119
  Transmission Date: 20230417
  Serious: Yes (Death)
  Sender: FDA-Public Use
  Company Number: SK-DSJP-DSJ-2023-101921

PATIENT
  Age: 79 Year
  Sex: Female

DRUGS (1)
  1. EDOXABAN [Suspect]
     Active Substance: EDOXABAN
     Indication: Deep vein thrombosis
     Dosage: 60 MG, QD
     Route: 065

REACTIONS (1)
  - Malignant neoplasm progression [Fatal]
